FAERS Safety Report 12728181 (Version 1)
Quarter: 2016Q3

REPORT INFORMATION
  Report Type: Spontaneous
  Country: US (occurrence: US)
  Receive Date: 20160909
  Receipt Date: 20160909
  Transmission Date: 20161109
  Serious: No
  Sender: FDA-Public Use
  Company Number: US-BECTON DICKINSON-2016BDN00045

PATIENT
  Sex: Male

DRUGS (1)
  1. CHLORAPREP ONE-STEP SEPP [Suspect]
     Active Substance: CHLORHEXIDINE GLUCONATE\ISOPROPYL ALCOHOL
     Indication: INFECTION PROPHYLAXIS
     Dosage: UNK, ONCE
     Route: 061
     Dates: start: 20160220, end: 20160220

REACTIONS (4)
  - Burning sensation [Recovered/Resolved]
  - Skin abrasion [Recovering/Resolving]
  - Haemorrhage [Recovering/Resolving]
  - Pain [Recovered/Resolved]

NARRATIVE: CASE EVENT DATE: 20160220
